FAERS Safety Report 13303102 (Version 1)
Quarter: 2017Q1

REPORT INFORMATION
  Report Type: Spontaneous
  Country: AU (occurrence: AU)
  Receive Date: 20170307
  Receipt Date: 20170307
  Transmission Date: 20170428
  Serious: Yes (Other)
  Sender: FDA-Public Use
  Company Number: AU-PFIZER INC-2017068570

PATIENT
  Age: 54 Year
  Sex: Female
  Weight: 75 kg

DRUGS (7)
  1. NEXIUM [Concomitant]
     Active Substance: ESOMEPRAZOLE MAGNESIUM
     Indication: GASTROOESOPHAGEAL REFLUX DISEASE
     Dosage: 20 MG, DAILY
     Route: 048
     Dates: start: 2013
  2. SUMATRIPTAN. [Interacting]
     Active Substance: SUMATRIPTAN
     Indication: CLUSTER HEADACHE
     Dosage: 100 MG, 3X/DAY
     Route: 048
     Dates: start: 201504
  3. LYRICA [Interacting]
     Active Substance: PREGABALIN
     Indication: SCIATICA
  4. LYRICA [Suspect]
     Active Substance: PREGABALIN
     Indication: NEURALGIA
     Dosage: 75 MG, 3X/DAY
     Route: 048
     Dates: start: 201501
  5. DULOXETINE. [Concomitant]
     Active Substance: DULOXETINE
     Indication: SCIATICA
     Dosage: 60 MG, DAILY
     Route: 048
     Dates: start: 201608
  6. SUMATRIPTAN. [Interacting]
     Active Substance: SUMATRIPTAN
     Dosage: APPROX. ONE PER DAY
  7. SUMATRIPTAN. [Interacting]
     Active Substance: SUMATRIPTAN
     Dosage: UNK, 3X/DAY

REACTIONS (8)
  - Headache [Recovering/Resolving]
  - Myalgia [Unknown]
  - Blood creatine phosphokinase increased [Recovering/Resolving]
  - Condition aggravated [Recovering/Resolving]
  - Muscular weakness [Unknown]
  - Drug interaction [Unknown]
  - Rhabdomyolysis [Recovering/Resolving]
  - Muscle contractions involuntary [Unknown]

NARRATIVE: CASE EVENT DATE: 201604
